FAERS Safety Report 8499372 (Version 2)
Quarter: 2012Q4

REPORT INFORMATION
  Report Type: 
  Country: US (occurrence: US)
  Receive Date: 20120409
  Receipt Date: 20121214
  Transmission Date: 20130627
  Serious: Yes (Other)
  Sender: FDA-Public Use
  Company Number: US-JNJFOC-20120401438

PATIENT
  Sex: Female
  Weight: 110.22 kg

DRUGS (2)
  1. NUCYNTA [Suspect]
     Indication: ARTHRITIS
     Dosage: 6 times a day
     Route: 048
     Dates: start: 2009, end: 201106
  2. NUCYNTA [Suspect]
     Indication: ARTHRITIS
     Dosage: 10 times a day
     Route: 048
     Dates: start: 201106, end: 201107

REACTIONS (2)
  - Fibromyalgia [Not Recovered/Not Resolved]
  - Drug ineffective [Not Recovered/Not Resolved]
